FAERS Safety Report 8454386-1 (Version None)
Quarter: 2012Q2

REPORT INFORMATION
  Report Type: 
  Country: None (occurrence: None)
  Receive Date: 20120621
  Receipt Date: 20120612
  Transmission Date: 20120825
  Serious: Yes (Hospitalization)
  Sender: FDA-Public Use
  Company Number: US-BIOGENIDEC-2011BI047370

PATIENT
  Sex: Female

DRUGS (4)
  1. TYSABRI [Suspect]
     Dates: start: 20110901
  2. AVONEX [Concomitant]
     Indication: MULTIPLE SCLEROSIS
     Route: 030
  3. TYSABRI [Suspect]
     Route: 042
     Dates: start: 20070430, end: 20110901
  4. TYSABRI [Suspect]
     Indication: MULTIPLE SCLEROSIS
     Route: 042
     Dates: start: 20050203, end: 20050228

REACTIONS (6)
  - DISORIENTATION [None]
  - DEVICE RELATED INFECTION [None]
  - URINARY TRACT INFECTION [None]
  - DRUG SPECIFIC ANTIBODY PRESENT [None]
  - MUSCLE SPASMS [None]
  - GAIT DISTURBANCE [None]
